FAERS Safety Report 10097185 (Version 1)
Quarter: 2014Q2

REPORT INFORMATION
  Report Type: Spontaneous
  Country: US (occurrence: US)
  Receive Date: 20140422
  Receipt Date: 20140422
  Transmission Date: 20141212
  Serious: Yes (Hospitalization)
  Sender: FDA-Public Use
  Company Number: US-GILEAD-2014-0100358

PATIENT
  Sex: Female

DRUGS (13)
  1. LETAIRIS [Suspect]
     Indication: PRODUCT USED FOR UNKNOWN INDICATION
     Dosage: 10 MG, QD
     Route: 065
     Dates: start: 20120508
  2. NIFEDIPINE [Concomitant]
  3. SYNTHROID [Concomitant]
  4. CELEXA                             /00582602/ [Concomitant]
  5. CRESTOR [Concomitant]
  6. FENOFIBRATE [Concomitant]
  7. PREMARIN [Concomitant]
  8. OMEPRAZOLE [Concomitant]
  9. ASPIRIN [Concomitant]
  10. AMBIEN [Concomitant]
  11. HYDROCODONE [Concomitant]
  12. SYMBICORT [Concomitant]
  13. LASIX                              /00032601/ [Concomitant]

REACTIONS (1)
  - Chest pain [Recovered/Resolved]
